FAERS Safety Report 4303531-8 (Version None)
Quarter: 2004Q1

REPORT INFORMATION
  Report Type: 
  Country: None (occurrence: None)
  Receive Date: 20040224
  Receipt Date: 20040224
  Transmission Date: 20041129
  Serious: Yes (Hospitalization)
  Sender: FDA-Public Use
  Company Number: None

PATIENT
  Age: 69 Year
  Sex: Male
  Weight: 113.3993 kg

DRUGS (1)
  1. EPTIFIBATIDE [Suspect]
     Dosage: BOLUS: 180MCG/KG X 2=20448MCG DRIP: 2MCG/KG/MIN =6.8 ML/UR
     Dates: start: 20031205

REACTIONS (1)
  - THROMBOCYTOPENIA [None]
